FAERS Safety Report 6196217-9 (Version None)
Quarter: 2009Q2

REPORT INFORMATION
  Report Type: 
  Country: None (occurrence: None)
  Receive Date: 20090520
  Receipt Date: 20090512
  Transmission Date: 20091009
  Serious: Yes (Other)
  Sender: FDA-Public Use
  Company Number: US-AVENTIS-200817592US

PATIENT
  Sex: Male
  Weight: 83.91 kg

DRUGS (4)
  1. KETEK [Suspect]
     Indication: PNEUMONIA
     Dates: start: 20051010, end: 20051020
  2. ASPIRIN [Concomitant]
     Dosage: DOSE: UNK
  3. IBUPROFEN [Concomitant]
     Dosage: DOSE: UNK
  4. LEVAQUIN [Concomitant]

REACTIONS (19)
  - COUGH [None]
  - DIARRHOEA [None]
  - DYSGEUSIA [None]
  - DYSPNOEA [None]
  - FATIGUE [None]
  - HEADACHE [None]
  - HEPATITIS [None]
  - HYPERHIDROSIS [None]
  - HYPOAESTHESIA [None]
  - INSOMNIA [None]
  - LIVER FUNCTION TEST ABNORMAL [None]
  - MYALGIA [None]
  - NAUSEA [None]
  - NEUROLOGICAL SYMPTOM [None]
  - PAIN [None]
  - PARAESTHESIA [None]
  - PYREXIA [None]
  - VIRAL INFECTION [None]
  - YELLOW SKIN [None]
